FAERS Safety Report 9498361 (Version 1)
Quarter: 2013Q3

REPORT INFORMATION
  Report Type: Spontaneous
  Country: US (occurrence: None)
  Receive Date: 20130903
  Receipt Date: 20130903
  Transmission Date: 20140515
  Serious: Yes (Other)
  Sender: FDA-Public Use
  Company Number: None

PATIENT
  Age: 70 Year
  Sex: Male

DRUGS (1)
  1. NOVOLOG [Suspect]
     Route: 058

REACTIONS (3)
  - Dizziness [None]
  - Blood glucose decreased [None]
  - Injection site reaction [None]
